FAERS Safety Report 5811002-2 (Version None)
Quarter: 2008Q3

REPORT INFORMATION
  Report Type: 
  Country: None (occurrence: None)
  Receive Date: 20080716
  Receipt Date: 20080714
  Transmission Date: 20090109
  Serious: Yes (Hospitalization)
  Sender: FDA-Public Use
  Company Number: IT-SP-2008-02153

PATIENT
  Age: 66 Year
  Sex: Male

DRUGS (6)
  1. IMMUCYST [Suspect]
     Indication: BLADDER CANCER
     Route: 043
     Dates: start: 20070530, end: 20080416
  2. CARVEDILOLO [Concomitant]
  3. RAMIPRIL [Concomitant]
  4. CRESTOR [Concomitant]
  5. ESKIM [Concomitant]
  6. ASPIRIN [Concomitant]

REACTIONS (5)
  - BOVINE TUBERCULOSIS [None]
  - BRONCHOPNEUMONIA [None]
  - GRANULOCYTOPENIA [None]
  - HYPERPYREXIA [None]
  - JAUNDICE [None]
